FAERS Safety Report 12241968 (Version 1)
Quarter: 2016Q2

REPORT INFORMATION
  Report Type: Spontaneous
  Country: PL (occurrence: PL)
  Receive Date: 20160406
  Receipt Date: 20160406
  Transmission Date: 20160815
  Serious: Yes (Other)
  Sender: FDA-Public Use
  Company Number: PL-AMGEN-POLSP2016041885

PATIENT
  Age: 65 Year
  Sex: Female

DRUGS (9)
  1. CLOPIDOGREL [Concomitant]
     Active Substance: CLOPIDOGREL BISULFATE
     Dosage: UNK
     Dates: start: 2010
  2. CALCIUM [Concomitant]
     Active Substance: CALCIUM
     Dosage: UNK
  3. POLOCARD [Concomitant]
     Active Substance: ASPIRIN
     Dosage: UNK
  4. PROLIA [Suspect]
     Active Substance: DENOSUMAB
     Indication: PRODUCT USED FOR UNKNOWN INDICATION
     Dosage: UNK
     Route: 065
  5. CARVEDILOL. [Concomitant]
     Active Substance: CARVEDILOL
     Dosage: UNK,6.25 IN THE MORNING AND THE HALF IN THE EVENING
  6. HISTIGEN [Concomitant]
     Indication: VERTIGO
     Dosage: UNK
  7. ROSWERA [Concomitant]
     Dosage: 10 MG, UNK
  8. VIGANTOLETTEN [Concomitant]
     Active Substance: CHOLECALCIFEROL
     Dosage: 1 DROP, QD
  9. VIVACE                             /00885601/ [Concomitant]
     Dosage: UNK

REACTIONS (5)
  - Mitral valve incompetence [Not Recovered/Not Resolved]
  - Visual impairment [Unknown]
  - Chills [Unknown]
  - Muscle spasms [Unknown]
  - Myalgia [Unknown]

NARRATIVE: CASE EVENT DATE: 2015
